FAERS Safety Report 18082853 (Version 2)
Quarter: 2025Q3

REPORT INFORMATION
  Report Type: Spontaneous
  Country: GB (occurrence: GB)
  Receive Date: 20200729
  Receipt Date: 20250706
  Transmission Date: 20251021
  Serious: Yes (Hospitalization, Other)
  Sender: AUROBINDO
  Company Number: GB-PERRIGO-20GB009803

PATIENT
  Age: 17 Year
  Sex: Female

DRUGS (1)
  1. ACETAMINOPHEN [Suspect]
     Active Substance: ACETAMINOPHEN
     Indication: Product used for unknown indication
     Route: 048

REACTIONS (2)
  - Pancreatitis acute [Recovered/Resolved]
  - Intentional overdose [Recovered/Resolved]
